FAERS Safety Report 24809149 (Version 1)
Quarter: 2025Q1

REPORT INFORMATION
  Report Type: Spontaneous
  Country: TH (occurrence: TH)
  Receive Date: 20250106
  Receipt Date: 20250106
  Transmission Date: 20250409
  Serious: Yes (Other)
  Sender: EPIC PHARM
  Company Number: TH-EPICPHARMA-TH-2024EPCLIT01612

PATIENT
  Age: 84 Year
  Sex: Male

DRUGS (1)
  1. METFORMIN HYDROCHLORIDE [Suspect]
     Active Substance: METFORMIN HYDROCHLORIDE
     Indication: Type 2 diabetes mellitus
     Dosage: FOR MORE THAN 25 YEARS
     Route: 065

REACTIONS (3)
  - Subdural haematoma [Recovering/Resolving]
  - Gait disturbance [Recovering/Resolving]
  - Vitamin B12 deficiency [Recovering/Resolving]
